FAERS Safety Report 18817261 (Version 2)
Quarter: 2021Q2

REPORT INFORMATION
  Report Type: Report from Study
  Country: TR (occurrence: TR)
  Receive Date: 20210201
  Receipt Date: 20210406
  Transmission Date: 20210717
  Serious: Yes (Death, Hospitalization)
  Sender: FDA-Public Use
  Company Number: TR-KARYOPHARM-2020KPT001528

PATIENT
  Age: 41 Year
  Sex: Female
  Weight: 67 kg

DRUGS (3)
  1. SELINEXOR [Suspect]
     Active Substance: SELINEXOR
     Dosage: 80 MG, WEEKLY
     Route: 048
     Dates: start: 20201207, end: 20201207
  2. SELINEXOR [Suspect]
     Active Substance: SELINEXOR
     Indication: OLIGOASTROCYTOMA
     Dosage: 80 MG, WEEKLY
     Route: 048
     Dates: start: 20201103
  3. LOMUSTINE. [Concomitant]
     Active Substance: LOMUSTINE
     Indication: OLIGOASTROCYTOMA
     Dosage: UNK

REACTIONS (4)
  - Anaemia [Unknown]
  - C-reactive protein increased [Unknown]
  - Sepsis [Fatal]
  - Thrombocytopenia [Unknown]

NARRATIVE: CASE EVENT DATE: 202012
